FAERS Safety Report 7298932-2 (Version None)
Quarter: 2011Q1

REPORT INFORMATION
  Report Type: 
  Country: None (occurrence: None)
  Receive Date: 20110208
  Receipt Date: 20110201
  Transmission Date: 20110831
  Serious: Yes (Life-Threatening, Other)
  Sender: FDA-Public Use
  Company Number: 2010JP006691

PATIENT
  Age: 10 Year
  Sex: Female
  Weight: 27 kg

DRUGS (11)
  1. PREDNISOLONE SODIUM SUCCINATE INJ [Suspect]
     Indication: GRAFT VERSUS HOST DISEASE
     Dosage: 15 MG, BID, IV NOS
     Route: 042
     Dates: start: 20100105, end: 20100131
  2. METHOTREXATE [Concomitant]
  3. ANABOLIC STEROIDS [Concomitant]
  4. NORVASC [Concomitant]
  5. MYCOPHENOLATE MOFETIL [Concomitant]
  6. NIFEDIPINE [Concomitant]
  7. RECOMODULIN (THROMBOMODULIN) [Concomitant]
  8. SODIUM BICARBONATE [Concomitant]
  9. PROGRAF [Suspect]
     Indication: PROPHYLAXIS AGAINST GRAFT VERSUS HOST DISEASE
     Dosage: 2.8 MG, 2 MG
     Dates: start: 20100105, end: 20110127
  10. PROGRAF [Suspect]
     Indication: PROPHYLAXIS AGAINST GRAFT VERSUS HOST DISEASE
     Dosage: 2.8 MG, 2 MG
     Dates: end: 20100104
  11. PROGRAF [Suspect]
     Indication: PROPHYLAXIS AGAINST GRAFT VERSUS HOST DISEASE
     Dosage: 2.8 MG, 2 MG
     Dates: start: 20100128, end: 20100211

REACTIONS (20)
  - STAPHYLOCOCCUS TEST POSITIVE [None]
  - ANTIBIOTIC RESISTANT STAPHYLOCOCCUS TEST POSITIVE [None]
  - DRUG INEFFECTIVE [None]
  - TOXICITY TO VARIOUS AGENTS [None]
  - SEPSIS [None]
  - HAEMATURIA [None]
  - EPISTAXIS [None]
  - HEPATIC FUNCTION ABNORMAL [None]
  - RENAL IMPAIRMENT [None]
  - HAEMATOCHEZIA [None]
  - HAEMODIALYSIS [None]
  - PLATELET COUNT DECREASED [None]
  - HAEMOLYTIC ANAEMIA [None]
  - ASCITES [None]
  - PLEURAL EFFUSION [None]
  - THROMBOTIC THROMBOCYTOPENIC PURPURA [None]
  - THROMBOTIC MICROANGIOPATHY [None]
  - PYREXIA [None]
  - ACUTE GRAFT VERSUS HOST DISEASE IN SKIN [None]
  - HAEMOLYTIC URAEMIC SYNDROME [None]
